FAERS Safety Report 6993951-5 (Version None)
Quarter: 2010Q3

REPORT INFORMATION
  Report Type: 
  Country: None (occurrence: None)
  Receive Date: 20100917
  Receipt Date: 20091223
  Transmission Date: 20110219
  Serious: No
  Sender: FDA-Public Use
  Company Number: US-ASTRAZENECA-2009SE23413

PATIENT
  Age: 34 Year
  Sex: Male

DRUGS (4)
  1. SEROQUEL XR [Suspect]
     Route: 048
  2. XANAX [Concomitant]
  3. METHADONE HCL [Concomitant]
  4. PROCARDIA [Concomitant]

REACTIONS (1)
  - HEADACHE [None]
